FAERS Safety Report 7949706-8 (Version None)
Quarter: 2011Q4

REPORT INFORMATION
  Report Type: 
  Country: None (occurrence: None)
  Receive Date: 20111130
  Receipt Date: 20111123
  Transmission Date: 20120403
  Serious: Yes (Other)
  Sender: FDA-Public Use
  Company Number: MT-ABBOTT-11P-103-0877292-00

PATIENT
  Age: 42 Year
  Sex: Female

DRUGS (2)
  1. MUCICLAIR SYRUP [Concomitant]
     Indication: PRODUCT USED FOR UNKNOWN INDICATION
  2. CLARITHROMYCIN [Suspect]
     Indication: TONSILLITIS
     Route: 048

REACTIONS (4)
  - TONGUE DISORDER [None]
  - SPEECH DISORDER [None]
  - HYPOPHAGIA [None]
  - MOUTH ULCERATION [None]
